FAERS Safety Report 6244134-8 (Version None)
Quarter: 2009Q2

REPORT INFORMATION
  Report Type: 
  Country: None (occurrence: None)
  Receive Date: 20090625
  Receipt Date: 20090616
  Transmission Date: 20091009
  Serious: Yes (Disabling)
  Sender: FDA-Public Use
  Company Number: US-ELI_LILLY_AND_COMPANY-US200905005376

PATIENT
  Sex: Male

DRUGS (3)
  1. HUMATROPE [Suspect]
     Dosage: UNK, UNK
     Dates: end: 20090101
  2. CORTISONE [Concomitant]
  3. THYROID THERAPY [Concomitant]

REACTIONS (8)
  - BACK PAIN [None]
  - GAIT DISTURBANCE [None]
  - HEADACHE [None]
  - MALAISE [None]
  - MUSCLE STRAIN [None]
  - NECK PAIN [None]
  - PAIN [None]
  - VOMITING [None]
